FAERS Safety Report 5084422-4 (Version None)
Quarter: 2006Q3

REPORT INFORMATION
  Report Type: 
  Country: None (occurrence: None)
  Receive Date: 20060821
  Receipt Date: 20031121
  Transmission Date: 20061208
  Serious: Yes (Hospitalization)
  Sender: FDA-Public Use
  Company Number: GB-GLAXOSMITHKLINE-B0315700A

PATIENT
  Sex: Female

DRUGS (1)
  1. SEROXAT [Suspect]
     Indication: PANIC DISORDER
     Dates: start: 20010706

REACTIONS (10)
  - ANKLE FRACTURE [None]
  - BACK DISORDER [None]
  - BREAST CANCER [None]
  - CONTUSION [None]
  - INTENTIONAL SELF-INJURY [None]
  - LACERATION [None]
  - LUNG INJURY [None]
  - MENTAL IMPAIRMENT [None]
  - SPINAL FRACTURE [None]
  - SUICIDE ATTEMPT [None]
